FAERS Safety Report 6338757-5 (Version None)
Quarter: 2009Q3

REPORT INFORMATION
  Report Type: 
  Country: None (occurrence: None)
  Receive Date: 20090903
  Receipt Date: 20090828
  Transmission Date: 20100115
  Serious: Yes (Other)
  Sender: FDA-Public Use
  Company Number: US-JNJFOC-20090900616

PATIENT
  Age: 62 Year
  Sex: Male
  Weight: 111.13 kg

DRUGS (5)
  1. LEVAQUIN [Suspect]
     Route: 048
  2. LEVAQUIN [Suspect]
     Indication: PNEUMONIA
     Route: 048
  3. ALLOPURINOL [Concomitant]
     Indication: NEPHROLITHIASIS
     Route: 048
  4. TRICOR [Concomitant]
     Indication: HYPERLIPIDAEMIA
     Route: 048
  5. ALBUTEROL [Concomitant]
     Indication: PNEUMONIA
     Route: 055

REACTIONS (1)
  - ARTHROPATHY [None]
